FAERS Safety Report 7037995-6 (Version None)
Quarter: 2010Q4

REPORT INFORMATION
  Report Type: 
  Country: None (occurrence: None)
  Receive Date: 20101011
  Receipt Date: 20101006
  Transmission Date: 20110411
  Serious: Yes (Hospitalization)
  Sender: FDA-Public Use
  Company Number: US-ROXANE LABORATORIES, INC.-2010-RO-01335RO

PATIENT
  Sex: Female

DRUGS (3)
  1. DEXAMETHASONE [Suspect]
     Dosage: 40 MG
     Route: 048
     Dates: start: 20100712
  2. ELOTUZUMAB [Suspect]
     Indication: MULTIPLE MYELOMA
     Route: 042
     Dates: start: 20100713
  3. LENALIDOMIDE [Suspect]
     Dosage: 25 MG
     Route: 048
     Dates: start: 20100712

REACTIONS (1)
  - PULMONARY EMBOLISM [None]
